FAERS Safety Report 5023816-X (Version None)
Quarter: 2006Q2

REPORT INFORMATION
  Report Type: 
  Country: None (occurrence: None)
  Receive Date: 20060606
  Receipt Date: 20060529
  Transmission Date: 20061013
  Serious: Yes (Hospitalization)
  Sender: FDA-Public Use
  Company Number: 110758ISR

PATIENT
  Age: 51 Year
  Sex: Male

DRUGS (5)
  1. FLUOROURACIL [Suspect]
     Dosage: INTRAVENOUS (NOS)
     Route: 042
     Dates: start: 20051228, end: 20051229
  2. LEUCOVORIN CALCIUM [Suspect]
     Indication: GASTRIC CANCER
     Dosage: INTRAVENOUS (NOS)
     Route: 042
     Dates: start: 20051228, end: 20051229
  3. GLIMEPIRIDE [Concomitant]
  4. METAMIZOLE [Concomitant]
  5. INSULIN LANTUS/ GLARGIN INSULIN [Concomitant]

REACTIONS (3)
  - ANAEMIA [None]
  - HAEMATEMESIS [None]
  - HYPOVOLAEMIC SHOCK [None]
